FAERS Safety Report 5782597-2 (Version None)
Quarter: 2008Q2

REPORT INFORMATION
  Report Type: 
  Country: None (occurrence: None)
  Receive Date: 20080624
  Receipt Date: 20080613
  Transmission Date: 20081010
  Serious: Yes (Other)
  Sender: FDA-Public Use
  Company Number: BR-PFIZER INC-2008050591

PATIENT
  Sex: Female
  Weight: 49 kg

DRUGS (2)
  1. DEPO-PROVERA SUSPENSION/INJ [Suspect]
     Indication: CONTRACEPTION
     Dosage: FREQ:FIRST INJECTION/TRIMESTRAL
     Dates: start: 20030101, end: 20030101
  2. DEPO-PROVERA SUSPENSION/INJ [Suspect]
     Dosage: FREQ:MOST RECENT INJECTION/TRIMESTRAL
     Dates: start: 20080612, end: 20080612

REACTIONS (9)
  - DENGUE FEVER [None]
  - DUODENITIS [None]
  - GASTROOESOPHAGEAL REFLUX DISEASE [None]
  - INJECTION SITE DISCOLOURATION [None]
  - INJECTION SITE LACERATION [None]
  - INJECTION SITE PAIN [None]
  - INJECTION SITE SWELLING [None]
  - INJECTION SITE WARMTH [None]
  - NASOPHARYNGITIS [None]
